FAERS Safety Report 10186723 (Version 5)
Quarter: 2014Q3

REPORT INFORMATION
  Report Type: Report from Study
  Country: CA (occurrence: CA)
  Receive Date: 20140521
  Receipt Date: 20140814
  Transmission Date: 20150326
  Serious: Yes (Life-Threatening, Hospitalization)
  Sender: FDA-Public Use
  Company Number: PHHY2014CA060567

PATIENT
  Age: 67 Year
  Sex: Male

DRUGS (4)
  1. SANDOSTATIN [Suspect]
     Active Substance: OCTREOTIDE ACETATE
     Indication: OFF LABEL USE
     Dosage: UNK UKN, UNK
     Route: 058
     Dates: start: 20140525
  2. SANDOSTATIN [Suspect]
     Active Substance: OCTREOTIDE ACETATE
     Indication: ANGIODYSPLASIA
     Dosage: UNK UKN, TID (ABOUT 2 WEEKS)
     Route: 058
     Dates: start: 20140428, end: 20140512
  3. SANDOSTATIN LAR DEPOT [Suspect]
     Active Substance: OCTREOTIDE ACETATE
     Indication: ANGIODYSPLASIA
     Dosage: 30 MG, QMO
     Route: 030
     Dates: start: 20140612
  4. SANDOSTATIN LAR DEPOT [Suspect]
     Active Substance: OCTREOTIDE ACETATE
     Indication: OFF LABEL USE

REACTIONS (8)
  - Myocardial infarction [Unknown]
  - Gait disturbance [Unknown]
  - Loss of consciousness [Unknown]
  - Anaemia [Unknown]
  - Peripheral swelling [Unknown]
  - Gastric haemorrhage [Unknown]
  - Blood pressure diastolic decreased [Unknown]
  - Fatigue [Unknown]

NARRATIVE: CASE EVENT DATE: 20140512
